FAERS Safety Report 9233612 (Version 1)
Quarter: 2013Q2

REPORT INFORMATION
  Report Type: Spontaneous
  Country: US (occurrence: US)
  Receive Date: 20130416
  Receipt Date: 20130416
  Transmission Date: 20140414
  Serious: No
  Sender: FDA-Public Use
  Company Number: US-BANPHARM-20130558

PATIENT
  Age: 37 Year
  Sex: Male
  Weight: 111.13 kg

DRUGS (1)
  1. ALEVE LIQUID GELS 220MG [Suspect]
     Route: 048

REACTIONS (5)
  - Throat irritation [Recovered/Resolved]
  - Dyspepsia [Recovered/Resolved]
  - Nausea [Recovered/Resolved]
  - Vomiting [Recovered/Resolved]
  - Wrong technique in drug usage process [Unknown]
